FAERS Safety Report 22167816 (Version 1)
Quarter: 2023Q2

REPORT INFORMATION
  Report Type: Spontaneous
  Country: GB (occurrence: GB)
  Receive Date: 20230403
  Receipt Date: 20230403
  Transmission Date: 20230722
  Serious: Yes (Other)
  Sender: FDA-Public Use
  Company Number: GB-MYLANLABS-2023M1034696

PATIENT
  Age: 30 Year
  Sex: Female

DRUGS (7)
  1. HYDROCORTISONE [Suspect]
     Active Substance: HYDROCORTISONE
     Indication: Evidence based treatment
     Dosage: UNK
     Route: 061
  2. HYDROCORTISONE [Suspect]
     Active Substance: HYDROCORTISONE
     Indication: Rash
  3. HYDROCORTISONE [Suspect]
     Active Substance: HYDROCORTISONE
     Indication: Rash papulosquamous
  4. CLOBETASONE BUTYRATE [Suspect]
     Active Substance: CLOBETASONE BUTYRATE
     Indication: Evidence based treatment
     Dosage: UNK
     Route: 061
  5. CLOBETASONE BUTYRATE [Suspect]
     Active Substance: CLOBETASONE BUTYRATE
     Indication: Rash
  6. CLOBETASONE BUTYRATE [Suspect]
     Active Substance: CLOBETASONE BUTYRATE
     Indication: Rash papulosquamous
  7. VITAMIN E [Concomitant]
     Active Substance: .ALPHA.-TOCOPHEROL
     Indication: Product used for unknown indication
     Dosage: UNK
     Route: 065

REACTIONS (1)
  - Drug ineffective [Unknown]
